FAERS Safety Report 5871239-3 (Version None)
Quarter: 2008Q3

REPORT INFORMATION
  Report Type: 
  Country: None (occurrence: None)
  Receive Date: 20080903
  Receipt Date: 20080903
  Transmission Date: 20090109
  Serious: Yes (Death)
  Sender: FDA-Public Use
  Company Number: None

PATIENT
  Sex: Female
  Weight: 68.0396 kg

DRUGS (1)
  1. DIGIBIND [Suspect]
     Indication: CARDIOMYOPATHY
     Dosage: 0.125 MG DAILY OROPHARINGEAL
     Route: 049

REACTIONS (3)
  - CARDIAC ARREST [None]
  - PLEURAL EFFUSION [None]
  - POST PROCEDURAL COMPLICATION [None]
